FAERS Safety Report 20604534 (Version 2)
Quarter: 2022Q3

REPORT INFORMATION
  Report Type: Report from Study
  Country: CA (occurrence: CA)
  Receive Date: 20220316
  Receipt Date: 20220824
  Transmission Date: 20221026
  Serious: Yes (Other)
  Sender: FDA-Public Use
  Company Number: CA-ABBVIE-21K-028-4154820-00

PATIENT
  Sex: Female

DRUGS (6)
  1. SKYRIZI [Suspect]
     Active Substance: RISANKIZUMAB-RZAA
     Indication: Psoriasis
     Route: 058
     Dates: start: 20210304
  2. SKYRIZI [Suspect]
     Active Substance: RISANKIZUMAB-RZAA
     Indication: Psoriatic arthropathy
  3. METHOTREXATE [Suspect]
     Active Substance: METHOTREXATE
     Indication: Product used for unknown indication
     Route: 065
  4. METHOTREXATE [Suspect]
     Active Substance: METHOTREXATE
     Route: 065
     Dates: start: 202205
  5. REPREVE [Concomitant]
     Indication: Product used for unknown indication
  6. REPREVE [Concomitant]
     Dates: start: 20210328, end: 20210521

REACTIONS (13)
  - Bone hypertrophy [Not Recovered/Not Resolved]
  - Intervertebral disc protrusion [Unknown]
  - Lumbar spinal stenosis [Not Recovered/Not Resolved]
  - Stenosis [Not Recovered/Not Resolved]
  - Rash [Recovered/Resolved]
  - Rash macular [Not Recovered/Not Resolved]
  - Spinal pain [Unknown]
  - Off label use [Unknown]
  - Psoriatic arthropathy [Not Recovered/Not Resolved]
  - C-reactive protein decreased [Unknown]
  - Rash [Unknown]
  - Skin disorder [Unknown]
  - Psoriasis [Recovered/Resolved]

NARRATIVE: CASE EVENT DATE: 20210101
